FAERS Safety Report 14804930 (Version 1)
Quarter: 2018Q2

REPORT INFORMATION
  Report Type: Spontaneous
  Country: US (occurrence: US)
  Receive Date: 20180417
  Receipt Date: 20180417
  Transmission Date: 20180711
  Serious: Yes (Hospitalization, Disabling)
  Sender: FDA-Public Use
  Company Number: None

PATIENT
  Age: 24 Year
  Sex: Female
  Weight: 81.65 kg

DRUGS (4)
  1. LOXAPINE. [Suspect]
     Active Substance: LOXAPINE
     Indication: MENTAL DISORDER
     Route: 048
  2. CLONAZEPAM. [Suspect]
     Active Substance: CLONAZEPAM
  3. SLEEPING TEA (SWEET DREAMS BRAND) [Concomitant]
  4. BENZTROPINE. [Suspect]
     Active Substance: BENZTROPINE

REACTIONS (6)
  - Gait disturbance [None]
  - Muscle twitching [None]
  - Emotional disorder [None]
  - Muscle spasms [None]
  - Back pain [None]
  - Eye disorder [None]

NARRATIVE: CASE EVENT DATE: 20160301
